FAERS Safety Report 12662256 (Version 1)
Quarter: 2016Q3

REPORT INFORMATION
  Report Type: Spontaneous
  Country: US (occurrence: US)
  Receive Date: 20160817
  Receipt Date: 20160817
  Transmission Date: 20161109
  Serious: No
  Sender: FDA-Public Use
  Company Number: US-ASTRAZENECA-2016SE55985

PATIENT
  Age: 3335 Week
  Sex: Female
  Weight: 57.2 kg

DRUGS (5)
  1. ATIVAN [Concomitant]
     Active Substance: LORAZEPAM
  2. OXYCODEINE [Concomitant]
     Indication: PAIN
  3. MOVANTIK [Suspect]
     Active Substance: NALOXEGOL OXALATE
     Indication: CONSTIPATION
     Route: 048
     Dates: start: 201605
  4. VYTORIN [Concomitant]
     Active Substance: EZETIMIBE\SIMVASTATIN
     Dosage: DAILY
  5. OXYCODEINE [Concomitant]
     Indication: PAIN
     Dosage: 325 MG TWO AND A HALF TABLET TWICE A DAY.

REACTIONS (5)
  - Diarrhoea [Unknown]
  - Intentional product misuse [Unknown]
  - Constipation [Unknown]
  - Vomiting [Recovered/Resolved]
  - Abdominal pain upper [Recovered/Resolved]

NARRATIVE: CASE EVENT DATE: 201605
